FAERS Safety Report 8947588 (Version 2)
Quarter: 2013Q1

REPORT INFORMATION
  Report Type: Spontaneous
  Country: JP (occurrence: JP)
  Receive Date: 20121205
  Receipt Date: 20130130
  Transmission Date: 20140127
  Serious: Yes (Other)
  Sender: FDA-Public Use
  Company Number: JP-BAXTER-2012BAX025298

PATIENT
  Sex: Male
  Weight: 58 kg

DRUGS (7)
  1. ADVATE [Suspect]
     Indication: FACTOR VIII DEFICIENCY
     Route: 042
     Dates: start: 20080501, end: 201211
  2. ADVATE 2000 [Suspect]
     Indication: HAEMORRHAGE
     Route: 042
     Dates: end: 201211
  3. ADVATE 2000 [Suspect]
     Indication: FACTOR VIII DEFICIENCY
     Route: 040
     Dates: start: 20121104, end: 20121104
  4. ADVATE 2000 [Suspect]
     Indication: HAEMARTHROSIS
  5. KOGENATE-FS [Concomitant]
     Indication: HAEMARTHROSIS
     Route: 042
  6. KOGENATE-FS [Concomitant]
     Indication: FACTOR VIII DEFICIENCY
     Route: 040
     Dates: start: 201211, end: 201211
  7. KOGENATE-FS [Concomitant]
     Indication: HAEMORRHAGE
     Route: 041
     Dates: start: 201211, end: 201211

REACTIONS (1)
  - No therapeutic response [Recovered/Resolved]
